FAERS Safety Report 23308689 (Version 1)
Quarter: 2023Q4

REPORT INFORMATION
  Report Type: Spontaneous
  Country: US (occurrence: None)
  Receive Date: 20231217
  Receipt Date: 20231217
  Transmission Date: 20240110
  Serious: Yes (unspecified)
  Sender: FDA-Public Use
  Company Number: None

PATIENT
  Sex: Male
  Weight: 70 kg

DRUGS (1)
  1. LEVOFLOXACIN [Suspect]
     Active Substance: LEVOFLOXACIN
     Indication: Upper respiratory tract infection
     Dosage: OTHER QUANTITY : 1 CAPSULE(S);?FREQUENCY : TWICE A DAY;?
     Route: 048

REACTIONS (17)
  - Impaired quality of life [None]
  - Limb discomfort [None]
  - Pain [None]
  - Pyrexia [None]
  - Arthralgia [None]
  - Hypoaesthesia [None]
  - Arthralgia [None]
  - Asthenia [None]
  - Gait disturbance [None]
  - Anxiety [None]
  - Frustration tolerance decreased [None]
  - Erectile dysfunction [None]
  - Electrocardiogram abnormal [None]
  - Joint noise [None]
  - Joint effusion [None]
  - Meniscus injury [None]
  - Myalgia [None]

NARRATIVE: CASE EVENT DATE: 20231022
